FAERS Safety Report 6915334-6 (Version None)
Quarter: 2010Q3

REPORT INFORMATION
  Report Type: 
  Country: None (occurrence: None)
  Receive Date: 20100809
  Receipt Date: 20100311
  Transmission Date: 20110219
  Serious: No
  Sender: FDA-Public Use
  Company Number: US-ABBOTT-09P-163-0610086-00

PATIENT
  Sex: Female
  Weight: 82.174 kg

DRUGS (14)
  1. DEPAKOTE ER [Suspect]
     Indication: BIPOLAR DISORDER
     Dates: start: 20091103, end: 20091117
  2. DEPAKOTE ER [Suspect]
     Dates: start: 20091117
  3. SEROQUEL [Suspect]
     Indication: BIPOLAR DISORDER
     Dates: end: 20091117
  4. SEROQUEL [Suspect]
     Dosage: DECREASED
     Dates: start: 20091117
  5. NOVOLOG [Concomitant]
     Indication: DIABETES MELLITUS
  6. CONCERTA [Concomitant]
     Indication: PRODUCT USED FOR UNKNOWN INDICATION
  7. ABILIFY [Concomitant]
     Indication: BIPOLAR DISORDER
  8. COGENTIN [Concomitant]
     Indication: EXTRAPYRAMIDAL DISORDER
  9. ATIVAN [Concomitant]
     Indication: PRODUCT USED FOR UNKNOWN INDICATION
  10. ANAFRINAL [Concomitant]
     Indication: DEPRESSION
  11. ATENOLOL [Concomitant]
     Indication: HYPERTENSION
  12. TRICOR [Concomitant]
     Indication: BLOOD TRIGLYCERIDES INCREASED
  13. CRESTOR [Concomitant]
     Indication: BLOOD TRIGLYCERIDES INCREASED
  14. LOVENOX [Concomitant]
     Indication: PRODUCT USED FOR UNKNOWN INDICATION

REACTIONS (2)
  - AMMONIA INCREASED [None]
  - DYSARTHRIA [None]
